FAERS Safety Report 7918466-9 (Version None)
Quarter: 2011Q4

REPORT INFORMATION
  Report Type: 
  Country: None (occurrence: None)
  Receive Date: 20111116
  Receipt Date: 20110902
  Transmission Date: 20120403
  Serious: No
  Sender: FDA-Public Use
  Company Number: US-COVIDIEN/TYCO HEALTHCARE/MALLINCKRODT-T201101775

PATIENT
  Sex: Female

DRUGS (1)
  1. FENTANYL-100 [Suspect]
     Dosage: UNK

REACTIONS (2)
  - FEELING ABNORMAL [None]
  - DRUG INEFFECTIVE [None]
